FAERS Safety Report 20325441 (Version 1)
Quarter: 2022Q1

REPORT INFORMATION
  Report Type: Spontaneous
  Country: US (occurrence: US)
  Receive Date: 20220112
  Receipt Date: 20220112
  Transmission Date: 20220423
  Serious: No
  Sender: FDA-Public Use
  Company Number: US-TEVA-2021-US-1996011

PATIENT
  Sex: Male

DRUGS (1)
  1. AUSTEDO [Suspect]
     Active Substance: DEUTETRABENAZINE
     Route: 048

REACTIONS (1)
  - Dysphagia [Unknown]
